FAERS Safety Report 23794238 (Version 3)
Quarter: 2024Q2

REPORT INFORMATION
  Report Type: Spontaneous
  Country: US (occurrence: US)
  Receive Date: 20240429
  Receipt Date: 20240524
  Transmission Date: 20240715
  Serious: Yes (Other)
  Sender: FDA-Public Use
  Company Number: US-BRISTOL-MYERS SQUIBB COMPANY-2024-065579

PATIENT
  Age: 79 Year
  Sex: Male

DRUGS (1)
  1. POMALYST [Suspect]
     Active Substance: POMALIDOMIDE
     Indication: Plasma cell myeloma recurrent
     Dosage: TAKE 1 CAPSULE BY MOUTH EVERY DAY FOR 21 DAYS, THEN OFF FOR 7 DAYS
     Route: 048

REACTIONS (8)
  - Product dose omission issue [Recovered/Resolved]
  - Fatigue [Unknown]
  - Somnolence [Unknown]
  - Limb discomfort [Unknown]
  - Pain [Unknown]
  - Constipation [Unknown]
  - White blood cell count decreased [Unknown]
  - Product dose omission in error [Unknown]
